FAERS Safety Report 15910144 (Version 1)
Quarter: 2019Q1

REPORT INFORMATION
  Report Type: Spontaneous
  Country: US (occurrence: US)
  Receive Date: 20190204
  Receipt Date: 20190204
  Transmission Date: 20190417
  Serious: No
  Sender: FDA-Public Use
  Company Number: US-ABBVIE-18K-163-2354779-00

PATIENT
  Age: 14 Year
  Sex: Male

DRUGS (2)
  1. KINERET [Concomitant]
     Active Substance: ANAKINRA
     Indication: PRODUCT USED FOR UNKNOWN INDICATION
  2. HUMIRA [Suspect]
     Active Substance: ADALIMUMAB
     Indication: CROHN^S DISEASE
     Route: 058
     Dates: start: 2013, end: 2018

REACTIONS (3)
  - Crying [Recovered/Resolved]
  - Muscle tightness [Unknown]
  - Injection site pain [Not Recovered/Not Resolved]
